FAERS Safety Report 25688240 (Version 2)
Quarter: 2025Q3

REPORT INFORMATION
  Report Type: Spontaneous
  Country: US (occurrence: US)
  Receive Date: 20250818
  Receipt Date: 20250821
  Transmission Date: 20251021
  Serious: No
  Sender: ABBVIE
  Company Number: US-ABBVIE-6411670

PATIENT
  Age: 68 Year
  Sex: Male
  Weight: 100.69 kg

DRUGS (1)
  1. VYALEV [Suspect]
     Active Substance: FOSCARBIDOPA\FOSLEVODOPA
     Indication: Parkinson^s disease
     Route: 058
     Dates: start: 202506

REACTIONS (10)
  - Injection site infection [Unknown]
  - Infusion site pain [Not Recovered/Not Resolved]
  - Infusion site nodule [Recovering/Resolving]
  - Infusion site rash [Recovering/Resolving]
  - Catheter site bruise [Unknown]
  - Catheter site haemorrhage [Unknown]
  - Catheter site pain [Unknown]
  - Catheter site related reaction [Unknown]
  - Therapeutic response unexpected [Unknown]
  - Catheter site mass [Unknown]

NARRATIVE: CASE EVENT DATE: 20250101
